FAERS Safety Report 8499344-6 (Version None)
Quarter: 2012Q3

REPORT INFORMATION
  Report Type: 
  Country: None (occurrence: None)
  Receive Date: 20120710
  Receipt Date: 20120709
  Transmission Date: 20120928
  Serious: Yes (Other)
  Sender: FDA-Public Use
  Company Number: PHEH2006US01632

PATIENT
  Sex: Male
  Weight: 91.156 kg

DRUGS (11)
  1. GLYBURIDE [Concomitant]
  2. ZOMETA [Suspect]
     Dosage: 3.5 MG MONTHLY
     Dates: start: 20031101, end: 20050901
  3. THALIDOMIDE [Concomitant]
     Indication: MULTIPLE MYELOMA
     Dates: start: 20010101
  4. LORTAB [Concomitant]
     Dosage: 500 MG, PRN
  5. CALCIUM CARBONATE [Concomitant]
     Dosage: 1 DF, BID
  6. AREDIA [Suspect]
     Indication: MULTIPLE MYELOMA
     Dosage: 90 MG, QMO
     Route: 042
     Dates: start: 20020201, end: 20031006
  7. MELPHALAN HYDROCHLORIDE [Concomitant]
  8. PLAVIX [Concomitant]
     Dosage: 75 MG, QD
  9. CALCIUM CARBONATE [Concomitant]
     Dosage: 1 DF, BID
  10. ZOMETA [Suspect]
     Indication: MULTIPLE MYELOMA
     Dosage: 4 MG, QMO
     Route: 042
     Dates: start: 20031103, end: 20051010
  11. ZANTAC [Concomitant]
     Dosage: 150 MG, QD

REACTIONS (50)
  - OSTEONECROSIS OF JAW [None]
  - PRIMARY SEQUESTRUM [None]
  - ERYTHEMA [None]
  - CALCIFICATION METASTATIC [None]
  - MALIGNANT MELANOMA [None]
  - PLEURAL EFFUSION [None]
  - DYSPNOEA EXERTIONAL [None]
  - DIVERTICULUM [None]
  - BONE DISORDER [None]
  - LYMPHADENOPATHY [None]
  - WOUND HAEMORRHAGE [None]
  - EXPOSED BONE IN JAW [None]
  - OSTEOPOROSIS [None]
  - SPINAL OSTEOARTHRITIS [None]
  - DECREASED INTEREST [None]
  - RADICULOPATHY [None]
  - PNEUMONIA [None]
  - SUPRAVENTRICULAR TACHYCARDIA [None]
  - HYPERLIPIDAEMIA [None]
  - AORTIC VALVE INCOMPETENCE [None]
  - HYPOTENSION [None]
  - RENAL CYST [None]
  - BONE EROSION [None]
  - METASTASES TO SPINE [None]
  - FACET JOINT SYNDROME [None]
  - CARPAL TUNNEL SYNDROME [None]
  - PANCYTOPENIA [None]
  - ANAEMIA [None]
  - BIOPSY [None]
  - PAIN [None]
  - ARTHRALGIA [None]
  - RIB FRACTURE [None]
  - CELLULITIS [None]
  - CHEST PAIN [None]
  - SOFT TISSUE DISORDER [None]
  - COMPRESSION FRACTURE [None]
  - UPPER RESPIRATORY TRACT INFECTION [None]
  - BONE LESION [None]
  - HAEMORRHAGE [None]
  - LUNG INFILTRATION [None]
  - OSTEOARTHRITIS [None]
  - NECK MASS [None]
  - INFECTION [None]
  - OEDEMA MUCOSAL [None]
  - ANXIETY [None]
  - OSTEOLYSIS [None]
  - NEOPLASM MALIGNANT [None]
  - LEFT VENTRICULAR HYPERTROPHY [None]
  - BENIGN PROSTATIC HYPERPLASIA [None]
  - OSTEOMYELITIS [None]
